FAERS Safety Report 25841908 (Version 1)
Quarter: 2025Q3

REPORT INFORMATION
  Report Type: Spontaneous
  Country: RU (occurrence: RU)
  Receive Date: 20250924
  Receipt Date: 20250924
  Transmission Date: 20251020
  Serious: Yes (Death)
  Sender: PFIZER
  Company Number: RU-PFIZER INC-202500188149

PATIENT
  Age: 62 Year
  Sex: Female

DRUGS (1)
  1. TALZENNA [Suspect]
     Active Substance: TALAZOPARIB TOSYLATE
     Indication: Breast cancer metastatic
     Dosage: 75 MG, DAILY
     Dates: start: 20250801

REACTIONS (1)
  - Death [Fatal]

NARRATIVE: CASE EVENT DATE: 20250911
